FAERS Safety Report 5530406-9 (Version None)
Quarter: 2007Q4

REPORT INFORMATION
  Report Type: 
  Country: None (occurrence: None)
  Receive Date: 20071127
  Receipt Date: 20071127
  Transmission Date: 20080405
  Serious: Yes (Hospitalization)
  Sender: FDA-Public Use
  Company Number: None

PATIENT
  Age: 57 Year
  Sex: Male

DRUGS (1)
  1. HYDRALAZINE [Suspect]
     Indication: HYPERTENSION
     Dosage: 100MG TID PO
     Route: 048
     Dates: start: 20070706, end: 20070719

REACTIONS (2)
  - PERICARDIAL EFFUSION [None]
  - SYSTEMIC LUPUS ERYTHEMATOSUS [None]
